FAERS Safety Report 14610195 (Version 1)
Quarter: 2018Q1

REPORT INFORMATION
  Report Type: Spontaneous
  Country: IT (occurrence: IT)
  Receive Date: 20180307
  Receipt Date: 20180307
  Transmission Date: 20180509
  Serious: Yes (Death)
  Sender: FDA-Public Use
  Company Number: IT-LEADIANT BIOSCIENCES INC-2018STPI000120

PATIENT
  Age: 18 Year
  Sex: Female

DRUGS (7)
  1. DEXAMETHASONE. [Concomitant]
     Active Substance: DEXAMETHASONE
  2. RITUXIMAB. [Concomitant]
     Active Substance: RITUXIMAB
  3. PREDNISONE. [Concomitant]
     Active Substance: PREDNISONE
  4. ADAGEN [Suspect]
     Active Substance: PEGADEMASE BOVINE
     Indication: COMBINED IMMUNODEFICIENCY
  5. ADRIAMYCIN [Concomitant]
     Active Substance: DOXORUBICIN HYDROCHLORIDE
  6. VINCRISTINE [Concomitant]
     Active Substance: VINCRISTINE
  7. CYCLOPHOSPHAMIDE. [Concomitant]
     Active Substance: CYCLOPHOSPHAMIDE

REACTIONS (1)
  - Plasmablastic lymphoma [Fatal]
